FAERS Safety Report 16868031 (Version 2)
Quarter: 2019Q4

REPORT INFORMATION
  Report Type: Spontaneous
  Country: PT (occurrence: PT)
  Receive Date: 20190930
  Receipt Date: 20191009
  Transmission Date: 20200122
  Serious: Yes (Other)
  Sender: FDA-Public Use
  Company Number: PT-HIKMA PHARMACEUTICALS USA INC.-PT-H14001-19-47107

PATIENT
  Age: 57 Year
  Weight: 81.4 kg

DRUGS (1)
  1. VANCOMICINA HIKMA [Suspect]
     Active Substance: VANCOMYCIN HYDROCHLORIDE
     Indication: STAPHYLOCOCCAL INFECTION
     Route: 033
     Dates: start: 20190812, end: 20190819

REACTIONS (3)
  - Peritoneal effluent leukocyte count increased [Unknown]
  - Peritonitis [Unknown]
  - Peritoneal cloudy effluent [Recovered/Resolved]

NARRATIVE: CASE EVENT DATE: 201908
